FAERS Safety Report 5465230-9 (Version None)
Quarter: 2007Q3

REPORT INFORMATION
  Report Type: 
  Country: None (occurrence: None)
  Receive Date: 20070919
  Receipt Date: 20070919
  Transmission Date: 20080115
  Serious: Yes (Hospitalization)
  Sender: FDA-Public Use
  Company Number: None

PATIENT
  Age: 65 Year
  Sex: Male
  Weight: 83.9154 kg

DRUGS (1)
  1. CEPHALEXIN [Suspect]
     Indication: SKIN LACERATION
     Dosage: 1 CAPSULE 500 MG. 4 TIMES A DAY PO
     Route: 048
     Dates: start: 20070905, end: 20070907

REACTIONS (5)
  - BLOOD PRESSURE DECREASED [None]
  - CLOSTRIDIUM DIFFICILE COLITIS [None]
  - HYPERHIDROSIS [None]
  - PALLOR [None]
  - TREMOR [None]
